FAERS Safety Report 18367495 (Version 3)
Quarter: 2021Q1

REPORT INFORMATION
  Report Type: Spontaneous
  Country: US (occurrence: US)
  Receive Date: 20201009
  Receipt Date: 20210129
  Transmission Date: 20210419
  Serious: No
  Sender: FDA-Public Use
  Company Number: US-PFIZER INC-2020387738

PATIENT
  Age: 73 Year
  Sex: Female
  Weight: 99 kg

DRUGS (6)
  1. RESTASIS [Concomitant]
     Active Substance: CYCLOSPORINE
     Indication: DRY EYE
     Dosage: UNK, 2X/DAY (1 VIAL PER EYE TWICE A DAY)
  2. TOVIAZ [Suspect]
     Active Substance: FESOTERODINE FUMARATE
     Indication: CYSTITIS INTERSTITIAL
  3. HYDROCHLOROTHIAZIDE. [Concomitant]
     Active Substance: HYDROCHLOROTHIAZIDE
     Indication: BLOOD PRESSURE ABNORMAL
     Dosage: 12.5 MG, 2X/DAY
  4. PREMARIN [Concomitant]
     Active Substance: ESTROGENS, CONJUGATED
     Indication: SKIN DISORDER
     Dosage: 30 MG (3 TIMES A WEEK)
  5. HYDRALAZINE [Concomitant]
     Active Substance: HYDRALAZINE HYDROCHLORIDE
     Indication: HYPERTENSION
     Dosage: 10 MG, AS NEEDED
  6. TOVIAZ [Suspect]
     Active Substance: FESOTERODINE FUMARATE
     Indication: HYPERTONIC BLADDER
     Dosage: 4 MG, 1X/DAY (4MG TABLET, ONCE AT NIGHT)

REACTIONS (2)
  - Wrong dose [Unknown]
  - Hypoacusis [Unknown]
